FAERS Safety Report 19629105 (Version 1)
Quarter: 2021Q3

REPORT INFORMATION
  Report Type: Spontaneous
  Country: US (occurrence: US)
  Receive Date: 20210728
  Receipt Date: 20210728
  Transmission Date: 20211014
  Serious: No
  Sender: FDA-Public Use
  Company Number: US-FAGRON STERILE SERVICES-2114391

PATIENT
  Age: 64 Year
  Sex: Female
  Weight: 102.1 kg

DRUGS (1)
  1. GLYCOPYRROLATE 0.2MG/ML (API) 1MG PER 5ML IN A 5ML SYRINGE [Suspect]
     Active Substance: GLYCOPYRROLATE
     Dates: start: 20210721, end: 20210721

REACTIONS (1)
  - Drug ineffective [Recovered/Resolved]

NARRATIVE: CASE EVENT DATE: 20210721
